FAERS Safety Report 14349621 (Version 6)
Quarter: 2021Q2

REPORT INFORMATION
  Report Type: Spontaneous
  Country: US (occurrence: US)
  Receive Date: 20180104
  Receipt Date: 20210625
  Transmission Date: 20210716
  Serious: Yes (Disabling, Other)
  Sender: FDA-Public Use
  Company Number: US-ASTRAZENECA-2018SE00261

PATIENT
  Age: 21640 Day
  Sex: Female
  Weight: 89.4 kg

DRUGS (72)
  1. NEXIUM [Suspect]
     Active Substance: ESOMEPRAZOLE MAGNESIUM
     Indication: GASTROOESOPHAGEAL REFLUX DISEASE
     Route: 048
     Dates: start: 2007, end: 2016
  2. NEXIUM [Suspect]
     Active Substance: ESOMEPRAZOLE MAGNESIUM
     Indication: GASTROOESOPHAGEAL REFLUX DISEASE
     Dosage: CAPSULE
     Route: 048
     Dates: start: 20080820
  3. BAYER ASPIRIN [Concomitant]
     Active Substance: ASPIRIN
     Indication: CARDIAC DISORDER
  4. PLAVIX [Concomitant]
     Active Substance: CLOPIDOGREL BISULFATE
     Indication: BLOOD VISCOSITY ABNORMAL
  5. LISINOPRIL. [Concomitant]
     Active Substance: LISINOPRIL
     Indication: HYPERTENSION
  6. METFORMIN [Concomitant]
     Active Substance: METFORMIN HYDROCHLORIDE
     Route: 065
     Dates: start: 20130905
  7. NEXIUM [Suspect]
     Active Substance: ESOMEPRAZOLE MAGNESIUM
     Indication: GASTROOESOPHAGEAL REFLUX DISEASE
     Route: 048
     Dates: start: 2007, end: 2016
  8. LANTUS [Concomitant]
     Active Substance: INSULIN GLARGINE
  9. GABAPENTIN. [Concomitant]
     Active Substance: GABAPENTIN
  10. BIDIL [Concomitant]
     Active Substance: HYDRALAZINE HYDROCHLORIDE\ISOSORBIDE DINITRATE
  11. LITHIUM. [Concomitant]
     Active Substance: LITHIUM
  12. HYDROCODONE [Concomitant]
     Active Substance: HYDROCODONE
     Dates: start: 20101213
  13. BRILINTA [Concomitant]
     Active Substance: TICAGRELOR
  14. PREVPAC [Concomitant]
     Active Substance: AMOXICILLIN\CLARITHROMYCIN\LANSOPRAZOLE
  15. COLACE [Concomitant]
     Active Substance: DOCUSATE SODIUM
  16. NEXIUM [Suspect]
     Active Substance: ESOMEPRAZOLE MAGNESIUM
     Indication: GASTROOESOPHAGEAL REFLUX DISEASE
     Route: 048
     Dates: start: 200703, end: 201602
  17. BENADRYL [Concomitant]
     Active Substance: DIPHENHYDRAMINE HYDROCHLORIDE
     Indication: PRURITUS
     Route: 065
  18. CALCIPOTRIENE. [Concomitant]
     Active Substance: CALCIPOTRIENE
     Route: 065
  19. IRON [Concomitant]
     Active Substance: IRON
     Indication: ANAEMIA
  20. VIOXX [Concomitant]
     Active Substance: ROFECOXIB
     Indication: ANALGESIC THERAPY
  21. AMOXICILLIN. [Concomitant]
     Active Substance: AMOXICILLIN
     Indication: ANTIBIOTIC LEVEL
  22. HYDROCHLOROTHIAZIDE. [Concomitant]
     Active Substance: HYDROCHLOROTHIAZIDE
     Indication: HYPERTENSION
  23. NAPROXEN. [Concomitant]
     Active Substance: NAPROXEN
     Indication: ANALGESIC THERAPY
  24. JANUVIA [Concomitant]
     Active Substance: SITAGLIPTIN PHOSPHATE
  25. BUMAX [Concomitant]
  26. ALOGLIPTIN BENZOATE [Concomitant]
     Active Substance: ALOGLIPTIN BENZOATE
  27. NOVOLOG [Concomitant]
     Active Substance: INSULIN ASPART
  28. SODIUM CHLORIDE. [Concomitant]
     Active Substance: SODIUM CHLORIDE
  29. NEXIUM [Suspect]
     Active Substance: ESOMEPRAZOLE MAGNESIUM
     Indication: GASTROOESOPHAGEAL REFLUX DISEASE
     Dosage: CAPSULE
     Route: 048
     Dates: start: 20080820
  30. QUINAPRIL. [Concomitant]
     Active Substance: QUINAPRIL
     Indication: RENAL DISORDER
     Route: 065
  31. ZANTAC [Concomitant]
     Active Substance: RANITIDINE HYDROCHLORIDE
  32. MOMETASONE FUROATE. [Concomitant]
     Active Substance: MOMETASONE FUROATE
  33. FLUCONAZOLE. [Concomitant]
     Active Substance: FLUCONAZOLE
  34. HUMALOG [Concomitant]
     Active Substance: INSULIN LISPRO
  35. FERROUS SULFATE. [Concomitant]
     Active Substance: FERROUS SULFATE
  36. KETOPROFEN. [Concomitant]
     Active Substance: KETOPROFEN
  37. METOPROLOL. [Concomitant]
     Active Substance: METOPROLOL
  38. PIOGLITAZONE. [Concomitant]
     Active Substance: PIOGLITAZONE
     Route: 065
     Dates: start: 20130905
  39. MIRALAX [Concomitant]
     Active Substance: POLYETHYLENE GLYCOL 3350
  40. ROSUVASTATIN. [Concomitant]
     Active Substance: ROSUVASTATIN
  41. ALOGLIPTIN. [Concomitant]
     Active Substance: ALOGLIPTIN
  42. COREG [Concomitant]
     Active Substance: CARVEDILOL
     Indication: HYPERTENSION
     Dates: end: 20151201
  43. LANSOPRAZOLE. [Concomitant]
     Active Substance: LANSOPRAZOLE
  44. CLOPIDOGREL [Concomitant]
     Active Substance: CLOPIDOGREL BISULFATE
  45. MICROBID [Concomitant]
     Active Substance: SULFAMETHOXAZOLE\TRIMETHOPRIM
  46. NEXIUM [Suspect]
     Active Substance: ESOMEPRAZOLE MAGNESIUM
     Indication: GASTROOESOPHAGEAL REFLUX DISEASE
     Route: 048
     Dates: start: 200703, end: 201602
  47. NEXIUM [Suspect]
     Active Substance: ESOMEPRAZOLE MAGNESIUM
     Indication: GASTROOESOPHAGEAL REFLUX DISEASE
     Dosage: TAKE 1 CAPSULE BY MOUTH WITH AN EMPTY STOMACH
     Route: 048
     Dates: start: 20160215
  48. NEXIUM [Suspect]
     Active Substance: ESOMEPRAZOLE MAGNESIUM
     Indication: GASTROOESOPHAGEAL REFLUX DISEASE
     Dosage: TAKE 1 CAPSULE BY MOUTH WITH AN EMPTY STOMACH
     Route: 048
     Dates: start: 20160215
  49. CLOBETASOL [Concomitant]
     Active Substance: CLOBETASOL
     Route: 065
  50. HYDROCORTISONE. [Concomitant]
     Active Substance: HYDROCORTISONE
     Route: 065
  51. ENTRESTO [Concomitant]
     Active Substance: SACUBITRIL\VALSARTAN
     Indication: HYPERTENSION
  52. GLUCOSE [Concomitant]
     Active Substance: DEXTROSE
  53. BROMFED [Concomitant]
     Active Substance: BROMPHENIRAMINE MALEATE\DEXTROMETHORPHAN HYDROBROMIDE\PSEUDOEPHEDRINE HYDROCHLORIDE
  54. ATORVASTATIN [Concomitant]
     Active Substance: ATORVASTATIN
     Route: 065
     Dates: start: 20130905
  55. AVANDAMET [Concomitant]
     Active Substance: METFORMIN HYDROCHLORIDE\ROSIGLITAZONE MALEATE
  56. MOMETASONE [Concomitant]
     Active Substance: MOMETASONE
  57. IVABRADINE [Concomitant]
     Active Substance: IVABRADINE
  58. CRESTOR [Concomitant]
     Active Substance: ROSUVASTATIN CALCIUM
     Indication: BLOOD CHOLESTEROL ABNORMAL
     Route: 065
     Dates: start: 20151230, end: 20161229
  59. CLARITHROMYCIN. [Concomitant]
     Active Substance: CLARITHROMYCIN
  60. LEVEMIR [Concomitant]
     Active Substance: INSULIN DETEMIR
  61. LORATADINE. [Concomitant]
     Active Substance: LORATADINE
  62. TESSALON [Concomitant]
     Active Substance: BENZONATATE
  63. VITAMIN D [Concomitant]
     Active Substance: VITAMIN D NOS
  64. VIGAMOX [Concomitant]
     Active Substance: MOXIFLOXACIN HYDROCHLORIDE
  65. HEPARIN SODIUM. [Concomitant]
     Active Substance: HEPARIN SODIUM
  66. LASIX [Concomitant]
     Active Substance: FUROSEMIDE
     Indication: CARDIAC FAILURE CONGESTIVE
     Route: 065
     Dates: start: 2016
  67. ACCURETIC [Concomitant]
     Active Substance: HYDROCHLOROTHIAZIDE\QUINAPRIL HYDROCHLORIDE
     Route: 065
     Dates: start: 20150211, end: 20160211
  68. TRIAMCINOLONE [Concomitant]
     Active Substance: TRIAMCINOLONE
  69. SPIRONOLACTONE. [Concomitant]
     Active Substance: SPIRONOLACTONE
  70. INSULIN ASPART [Concomitant]
     Active Substance: INSULIN ASPART
     Route: 065
     Dates: start: 20130905
  71. METOLAZONE. [Concomitant]
     Active Substance: METOLAZONE
  72. METOPROLOL SUCCINATE. [Concomitant]
     Active Substance: METOPROLOL SUCCINATE

REACTIONS (6)
  - Nephrogenic anaemia [Unknown]
  - Metabolic encephalopathy [Unknown]
  - Chronic kidney disease [Not Recovered/Not Resolved]
  - Acute kidney injury [Unknown]
  - Nephropathy [Unknown]
  - Renal failure [Unknown]

NARRATIVE: CASE EVENT DATE: 20150624
